FAERS Safety Report 14154435 (Version 1)
Quarter: 2017Q4

REPORT INFORMATION
  Report Type: Spontaneous
  Country: US (occurrence: US)
  Receive Date: 20171102
  Receipt Date: 20171102
  Transmission Date: 20180321
  Serious: No
  Sender: FDA-Public Use
  Company Number: US-PERRIGO-17US001739

PATIENT
  Age: 66 Year
  Sex: Female
  Weight: 68.27 kg

DRUGS (1)
  1. CICLOPIROX. [Suspect]
     Active Substance: CICLOPIROX
     Indication: ONYCHOMYCOSIS
     Dosage: 1 APPLICATION, QD
     Route: 061
     Dates: start: 201701

REACTIONS (1)
  - Wrong technique in product usage process [Not Recovered/Not Resolved]

NARRATIVE: CASE EVENT DATE: 201701
